FAERS Safety Report 8883004 (Version 2)
Quarter: 2012Q4

REPORT INFORMATION
  Report Type: 
  Country: US (occurrence: US)
  Receive Date: 20121104
  Receipt Date: 20121203
  Transmission Date: 20130627
  Serious: Yes (Death)
  Sender: FDA-Public Use
  Company Number: US-CELGENEUS-163-21880-12110106

PATIENT
  Age: 76 Year
  Sex: Male

DRUGS (11)
  1. REVLIMID [Suspect]
     Indication: MULTIPLE MYELOMA
     Dosage: 25 Milligram
     Route: 048
     Dates: start: 200811
  2. REVLIMID [Suspect]
     Dosage: 25 Milligram
     Route: 048
     Dates: start: 20110915, end: 201207
  3. REVLIMID [Suspect]
     Dosage: 15 Milligram
     Route: 048
     Dates: start: 2012, end: 201208
  4. REVLIMID [Suspect]
     Dosage: 25 Milligram
     Route: 048
     Dates: start: 201210, end: 201210
  5. PRADAXA [Concomitant]
     Indication: ATRIAL FIBRILLATION
     Route: 048
     Dates: start: 2011
  6. B 12 [Concomitant]
     Indication: DIETARY B12 DEFICIENCY
     Route: 048
     Dates: start: 2008
  7. DEXAMETHASONE [Concomitant]
     Indication: MYELOMA
     Dosage: 40 Milligram
     Route: 048
     Dates: start: 2008, end: 201208
  8. NEURONTIN [Concomitant]
     Indication: NEUROPATHY PERIPHERAL
     Route: 048
     Dates: end: 2012
  9. CYMBALTA [Concomitant]
     Indication: NEUROPATHY PERIPHERAL
     Dosage: 20 Milligram
     Route: 048
     Dates: start: 201204, end: 201208
  10. RESTORE [Concomitant]
     Indication: SLEEP DISORDER
     Route: 065
  11. COUMADIN [Concomitant]
     Indication: DVT OF LEGS
     Route: 048
     Dates: end: 2011

REACTIONS (1)
  - Demyelination [Fatal]
